FAERS Safety Report 9879929 (Version 5)
Quarter: 2018Q1

REPORT INFORMATION
  Report Type: Report from Study
  Country: CA (occurrence: CA)
  Receive Date: 20140207
  Receipt Date: 20180314
  Transmission Date: 20180509
  Serious: Yes (Other)
  Sender: FDA-Public Use
  Company Number: CA-AMGEN-CANSP2014007457

PATIENT
  Age: 70 Year
  Sex: Male
  Weight: 90.7 kg

DRUGS (15)
  1. FOLIC ACID. [Concomitant]
     Active Substance: FOLIC ACID
     Dosage: UNK
  2. TELMISARTAN. [Concomitant]
     Active Substance: TELMISARTAN
     Dosage: UNK
  3. MOBICOX [Concomitant]
     Active Substance: MELOXICAM
     Dosage: UNK
  4. SIMVASTATIN. [Concomitant]
     Active Substance: SIMVASTATIN
     Dosage: UNK
  5. ENBREL [Suspect]
     Active Substance: ETANERCEPT
     Dosage: 50 MG, QWK
     Route: 058
     Dates: start: 20070624, end: 201402
  6. ZANTAC [Concomitant]
     Active Substance: RANITIDINE HYDROCHLORIDE
     Dosage: UNK
  7. ENBREL [Suspect]
     Active Substance: ETANERCEPT
     Indication: RHEUMATOID ARTHRITIS
     Dosage: 50 MG, QWK
     Route: 058
     Dates: start: 2006
  8. METHOTREXATE. [Concomitant]
     Active Substance: METHOTREXATE
     Dosage: UNK
     Dates: end: 201402
  9. RANITIDINE. [Concomitant]
     Active Substance: RANITIDINE
     Dosage: UNK
  10. ASA [Concomitant]
     Active Substance: ASPIRIN
     Dosage: UNK
  11. MELOXICAM. [Concomitant]
     Active Substance: MELOXICAM
     Dosage: 7.5 MG, BID
  12. HCTZ [Concomitant]
     Active Substance: HYDROCHLOROTHIAZIDE
     Dosage: 25 MG, QD
  13. PLAQUENIL [Concomitant]
     Active Substance: HYDROXYCHLOROQUINE SULFATE
     Dosage: 200 MG, BID
  14. ZOCON [Concomitant]
     Dosage: UNK
  15. TRAMADOL. [Concomitant]
     Active Substance: TRAMADOL
     Dosage: UNK

REACTIONS (8)
  - Red cell distribution width increased [Unknown]
  - Glycosylated haemoglobin increased [Unknown]
  - C-reactive protein increased [Unknown]
  - Lymphocyte count decreased [Unknown]
  - Red blood cell sedimentation rate increased [Unknown]
  - Eosinophil count increased [Unknown]
  - Red blood cell count decreased [Unknown]
  - Diffuse large B-cell lymphoma stage I [Recovered/Resolved]

NARRATIVE: CASE EVENT DATE: 201311
